FAERS Safety Report 15613229 (Version 2)
Quarter: 2018Q4

REPORT INFORMATION
  Report Type: Spontaneous
  Country: ES (occurrence: ES)
  Receive Date: 20181113
  Receipt Date: 20181119
  Transmission Date: 20190205
  Serious: Yes (Other)
  Sender: FDA-Public Use
  Company Number: ES-PFIZER INC-2018465760

PATIENT
  Age: 54 Year
  Sex: Female

DRUGS (2)
  1. METHYLPREDNISOLONE SODIUM SUCCINATE. [Suspect]
     Active Substance: METHYLPREDNISOLONE SODIUM SUCCINATE
     Indication: VOGT-KOYANAGI-HARADA SYNDROME
     Dosage: 1 G, UNK (ADMINSTER 3 INTRAVENOUS BOLUS)
     Route: 040
  2. CICLOSPORIN [Concomitant]
     Active Substance: CYCLOSPORINE
     Indication: VOGT-KOYANAGI-HARADA SYNDROME
     Dosage: CYCLOSPORINE DOSAGES WERE DIMINISHED PRIOR TO DISCONTINUATION

REACTIONS (3)
  - Chorioretinopathy [Recovering/Resolving]
  - Retinal detachment [Recovering/Resolving]
  - Condition aggravated [Recovering/Resolving]
